FAERS Safety Report 5417155-2 (Version None)
Quarter: 2007Q3

REPORT INFORMATION
  Report Type: 
  Country: None (occurrence: None)
  Receive Date: 20070718
  Receipt Date: 20070516
  Transmission Date: 20080115
  Serious: Yes (Other)
  Sender: FDA-Public Use
  Company Number: 2007039839

PATIENT
  Age: 68 Year
  Sex: Female
  Weight: 95.45 kg

DRUGS (3)
  1. CELEBREX [Suspect]
     Indication: ARTHRALGIA
     Dosage: 200 MG (200 MG, 1 IN 1D)
     Dates: end: 20070512
  2. SYNTHROID [Concomitant]
  3. LIPITOR [Concomitant]

REACTIONS (1)
  - RED BLOOD CELL COUNT DECREASED [None]
